FAERS Safety Report 8857526 (Version 1)
Quarter: 2012Q4

REPORT INFORMATION
  Report Type: 
  Country: US (occurrence: US)
  Receive Date: 20121024
  Receipt Date: 20121024
  Transmission Date: 20130627
  Serious: Yes (Other)
  Sender: FDA-Public Use
  Company Number: US-GLAXOSMITHKLINE-A0998374A

PATIENT
  Age: 58 Year
  Sex: Female

DRUGS (2)
  1. ADVAIR [Suspect]
     Indication: ASTHMA
     Dosage: 1PUFF Twice per day
     Route: 055
     Dates: start: 2010
  2. ALBUTEROL [Concomitant]

REACTIONS (2)
  - Glaucoma [Not Recovered/Not Resolved]
  - Drug prescribing error [Not Recovered/Not Resolved]
